FAERS Safety Report 5615641-3 (Version None)
Quarter: 2008Q1

REPORT INFORMATION
  Report Type: 
  Country: None (occurrence: None)
  Receive Date: 20080206
  Receipt Date: 20080131
  Transmission Date: 20080703
  Serious: Yes (Other)
  Sender: FDA-Public Use
  Company Number: B0506556A

PATIENT
  Age: 6 Year
  Sex: Female

DRUGS (1)
  1. CLENIL [Suspect]
     Indication: DRUG USE FOR UNKNOWN INDICATION
     Dosage: 50MCG TWICE PER DAY
     Route: 055
     Dates: start: 20080118, end: 20080118

REACTIONS (3)
  - NASAL DISCOMFORT [None]
  - PHARMACEUTICAL PRODUCT COMPLAINT [None]
  - THROAT IRRITATION [None]
